FAERS Safety Report 15365849 (Version 2)
Quarter: 2018Q3

REPORT INFORMATION
  Report Type: Spontaneous
  Country: US (occurrence: US)
  Receive Date: 20180910
  Receipt Date: 20180920
  Transmission Date: 20181010
  Serious: No
  Sender: FDA-Public Use
  Company Number: US-PFIZER INC-2018359939

PATIENT
  Age: 68 Year
  Sex: Male
  Weight: 87.98 kg

DRUGS (2)
  1. XELJANZ XR [Suspect]
     Active Substance: TOFACITINIB CITRATE
     Indication: PSORIATIC ARTHROPATHY
     Dosage: UNK
     Dates: start: 201808, end: 201808
  2. XELJANZ XR [Suspect]
     Active Substance: TOFACITINIB CITRATE
     Dosage: 11 MG, 1X/DAY
     Route: 048

REACTIONS (8)
  - Haemorrhoids [Unknown]
  - Psoriasis [Unknown]
  - Somnolence [Unknown]
  - Drug effect decreased [Unknown]
  - Haemorrhoidal haemorrhage [Unknown]
  - Condition aggravated [Unknown]
  - Weight increased [Unknown]
  - Frequent bowel movements [Unknown]

NARRATIVE: CASE EVENT DATE: 2018
